FAERS Safety Report 4657351-5 (Version None)
Quarter: 2005Q2

REPORT INFORMATION
  Report Type: 
  Country: None (occurrence: None)
  Receive Date: 20050411
  Receipt Date: 20020605
  Transmission Date: 20051028
  Serious: Yes (Other)
  Sender: FDA-Public Use
  Company Number: 5053

PATIENT
  Age: 10 Year
  Sex: Female

DRUGS (9)
  1. VINCRISTINE [Suspect]
     Dosage: 30.6 MG TOTAL
  2. DAUNOMYCIN [Concomitant]
  3. ASPARAGINASE [Concomitant]
  4. ETOPOSIDE [Concomitant]
  5. CYTARABINE [Concomitant]
  6. METHOTREXATE [Concomitant]
  7. MERCAPTOPURINE [Concomitant]
  8. PREDNISONE TAB [Concomitant]
  9. HYDROCORTISONE [Concomitant]

REACTIONS (1)
  - NEUROTOXICITY [None]
